FAERS Safety Report 8113089-3 (Version None)
Quarter: 2012Q1

REPORT INFORMATION
  Report Type: 
  Country: None (occurrence: None)
  Receive Date: 20120203
  Receipt Date: 20111211
  Transmission Date: 20120608
  Serious: Yes (Hospitalization)
  Sender: FDA-Public Use
  Company Number: DE-GLAXOSMITHKLINE-D0073768A

PATIENT
  Age: 83 Year
  Sex: Female
  Weight: 80 kg

DRUGS (1)
  1. ZOVIRAX [Suspect]
     Dosage: 375MG PER DAY
     Route: 058
     Dates: start: 20111211

REACTIONS (1)
  - OEDEMA PERIPHERAL [None]
